FAERS Safety Report 18202300 (Version 1)
Quarter: 2020Q3

REPORT INFORMATION
  Report Type: Spontaneous
  Country: US (occurrence: US)
  Receive Date: 20200826
  Receipt Date: 20200826
  Transmission Date: 20201103
  Serious: No
  Sender: FDA-Public Use
  Company Number: None

PATIENT

DRUGS (1)
  1. LEXAPRO [Suspect]
     Active Substance: ESCITALOPRAM OXALATE

REACTIONS (7)
  - Wrong product administered [None]
  - Depression [None]
  - Insomnia [None]
  - Withdrawal syndrome [None]
  - Product dispensing error [None]
  - Drug monitoring procedure not performed [None]
  - Suicidal ideation [None]
